FAERS Safety Report 17951659 (Version 3)
Quarter: 2020Q3

REPORT INFORMATION
  Report Type: Report from Study
  Country: AU (occurrence: AU)
  Receive Date: 20200626
  Receipt Date: 20200709
  Transmission Date: 20201103
  Serious: Yes (Death, Life-Threatening, Hospitalization, Other)
  Sender: FDA-Public Use
  Company Number: AU-BRISTOL-MYERS SQUIBB COMPANY-BMS-2020-050692

PATIENT
  Age: 76 Year
  Sex: Male

DRUGS (5)
  1. IPILIMUMAB [Suspect]
     Active Substance: IPILIMUMAB
     Indication: PROSTATE CANCER
     Dosage: UNK
     Route: 065
  2. NIVOLUMAB [Suspect]
     Active Substance: NIVOLUMAB
     Indication: PROSTATE CANCER
     Route: 065
  3. CARBOPLATIN. [Suspect]
     Active Substance: CARBOPLATIN
     Indication: PROSTATE CANCER
     Dosage: 400 MILLIGRAM
     Route: 065
     Dates: start: 20190117, end: 20190328
  4. CISPLATIN. [Suspect]
     Active Substance: CISPLATIN
     Indication: PROSTATE CANCER
     Dosage: UNK
     Route: 065
  5. ETOPOSIDE. [Suspect]
     Active Substance: ETOPOSIDE
     Indication: PROSTATE CANCER
     Dosage: 660 MILLIGRAM
     Route: 065
     Dates: start: 20190117, end: 20190328

REACTIONS (3)
  - Anal ulcer [Recovered/Resolved with Sequelae]
  - Rectal haemorrhage [Unknown]
  - Haematuria [Fatal]

NARRATIVE: CASE EVENT DATE: 20200519
